FAERS Safety Report 10207105 (Version 1)
Quarter: 2014Q2

REPORT INFORMATION
  Report Type: Spontaneous
  Country: US (occurrence: None)
  Receive Date: 20140528
  Receipt Date: 20140528
  Transmission Date: 20141212
  Serious: Yes (Life-Threatening, Disabling, Other)
  Sender: FDA-Public Use
  Company Number: None

PATIENT
  Age: 53 Year
  Sex: Male
  Weight: 79.38 kg

DRUGS (11)
  1. QUETIAPINE [Suspect]
     Indication: SLEEP DISORDER
     Dosage: 50 MG?2 PILLS?2 X DAILY AT BEDTIME?BY MOUTH. CUT BACK TO 25 MG. TABS (3-1-14)
     Route: 048
     Dates: start: 20140101
  2. QUETIAPINE [Suspect]
     Indication: SCHIZOAFFECTIVE DISORDER
     Dosage: 50 MG?2 PILLS?2 X DAILY AT BEDTIME?BY MOUTH. CUT BACK TO 25 MG. TABS (3-1-14)
     Route: 048
     Dates: start: 20140101
  3. WALKER [Concomitant]
  4. CANES [Concomitant]
  5. ATTIVAN [Concomitant]
  6. DULCALAX [Concomitant]
  7. ZOLPIDEM [Concomitant]
  8. VENAFLAXINE [Concomitant]
  9. GABAPENTIN [Concomitant]
  10. MULTIVITAMINS [Concomitant]
  11. BENADRYL [Concomitant]

REACTIONS (2)
  - Loss of consciousness [None]
  - Loss of consciousness [None]
